FAERS Safety Report 14673126 (Version 1)
Quarter: 2018Q1

REPORT INFORMATION
  Report Type: Report from Study
  Country: BR (occurrence: BR)
  Receive Date: 20180323
  Receipt Date: 20180323
  Transmission Date: 20180509
  Serious: Yes (Other)
  Sender: FDA-Public Use
  Company Number: PHHY2018BR048950

PATIENT
  Sex: Female

DRUGS (1)
  1. ACLASTA [Suspect]
     Active Substance: ZOLEDRONIC ACID
     Indication: OSTEOPOROSIS
     Dosage: 1 DF, Q12MO
     Route: 065

REACTIONS (4)
  - Diabetes mellitus [Recovering/Resolving]
  - Uterine haemorrhage [Not Recovered/Not Resolved]
  - Vaginal odour [Not Recovered/Not Resolved]
  - Uterine prolapse [Not Recovered/Not Resolved]
